FAERS Safety Report 13170636 (Version 2)
Quarter: 2018Q1

REPORT INFORMATION
  Report Type: Spontaneous
  Country: US (occurrence: US)
  Receive Date: 20170131
  Receipt Date: 20180124
  Transmission Date: 20180508
  Serious: No
  Sender: FDA-Public Use
  Company Number: US-ABBVIE-16K-163-1682604-00

PATIENT

DRUGS (3)
  1. HUMIRA [Suspect]
     Active Substance: ADALIMUMAB
     Indication: PRODUCT USED FOR UNKNOWN INDICATION
     Route: 058
  2. METHOTREXATE. [Concomitant]
     Active Substance: METHOTREXATE
     Indication: PRODUCT USED FOR UNKNOWN INDICATION
  3. OTEZLA [Concomitant]
     Active Substance: APREMILAST
     Indication: PRODUCT USED FOR UNKNOWN INDICATION
     Dates: start: 2016

REACTIONS (15)
  - Scratch [Unknown]
  - Joint injury [Unknown]
  - Arthralgia [Unknown]
  - Drug intolerance [Unknown]
  - Fatigue [Unknown]
  - Confusional state [Unknown]
  - Pain [Recovering/Resolving]
  - Drug hypersensitivity [Unknown]
  - Psoriasis [Unknown]
  - Blood cholesterol increased [Unknown]
  - General physical health deterioration [Unknown]
  - Loss of personal independence in daily activities [Unknown]
  - Gait inability [Unknown]
  - Frustration tolerance decreased [Unknown]
  - Rash [Recovered/Resolved]
